FAERS Safety Report 16221883 (Version 1)
Quarter: 2019Q2

REPORT INFORMATION
  Report Type: Spontaneous
  Country: ES (occurrence: ES)
  Receive Date: 20190422
  Receipt Date: 20190422
  Transmission Date: 20190711
  Serious: Yes (Other)
  Sender: FDA-Public Use
  Company Number: ES-TEVA-2019-ES-1040530

PATIENT
  Sex: Male

DRUGS (1)
  1. COPAXONE [Suspect]
     Active Substance: GLATIRAMER ACETATE
     Indication: MULTIPLE SCLEROSIS
     Dosage: UNKNOWN DOSE
     Route: 058
     Dates: start: 2015

REACTIONS (4)
  - Skin disorder [Unknown]
  - Skin necrosis [Recovered/Resolved]
  - Wrong technique in product usage process [Unknown]
  - Injection site infection [Recovered/Resolved]
